FAERS Safety Report 5941656-1 (Version None)
Quarter: 2008Q4

REPORT INFORMATION
  Report Type: 
  Country: None (occurrence: None)
  Receive Date: 20081105
  Receipt Date: 20081027
  Transmission Date: 20090506
  Serious: Yes (Other)
  Sender: FDA-Public Use
  Company Number: AU-ABBOTT-08P-056-0484220-00

PATIENT
  Sex: Male

DRUGS (1)
  1. VALPROATE SODIUM [Suspect]
     Indication: CONVULSION PROPHYLAXIS
     Route: 048

REACTIONS (2)
  - CONVULSION [None]
  - THERAPEUTIC RESPONSE UNEXPECTED WITH DRUG SUBSTITUTION [None]
